FAERS Safety Report 4530088-9 (Version None)
Quarter: 2004Q4

REPORT INFORMATION
  Report Type: 
  Country: None (occurrence: None)
  Receive Date: 20041215
  Receipt Date: 20041215
  Transmission Date: 20050328
  Serious: Yes (Other)
  Sender: FDA-Public Use
  Company Number: None

PATIENT
  Age: 79 Year
  Sex: Female

DRUGS (8)
  1. GLIPIZIDE [Suspect]
     Indication: DIABETES MELLITUS NON-INSULIN-DEPENDENT
     Dosage: 20MG  BID ORAL
     Route: 048
     Dates: start: 20040505, end: 20040617
  2. GLIPIZIDE [Suspect]
     Indication: DIABETES MELLITUS NON-INSULIN-DEPENDENT
     Dosage: 20MG  BID ORAL
     Route: 049
     Dates: start: 20040505, end: 20040617
  3. NITROGLYCERIN [Concomitant]
  4. COMBIVENT INHALERS [Concomitant]
  5. LEVOTHYROXINE SODIUM [Concomitant]
  6. AMLODIPINE [Concomitant]
  7. ASCORBIC ACID [Concomitant]
  8. SENNA [Concomitant]

REACTIONS (1)
  - BLOOD GLUCOSE INCREASED [None]
